FAERS Safety Report 4375931-1 (Version None)
Quarter: 2004Q2

REPORT INFORMATION
  Report Type: 
  Country: None (occurrence: None)
  Receive Date: 20040607
  Receipt Date: 20040520
  Transmission Date: 20050107
  Serious: Yes (Hospitalization)
  Sender: FDA-Public Use
  Company Number: DSA_24440_2004

PATIENT
  Age: 49 Year
  Sex: Female

DRUGS (4)
  1. TEVETEN [Suspect]
     Indication: HYPERTENSION
     Dosage: 600 MG Q DAY PO/A FEW YEARS
     Route: 048
     Dates: end: 20040206
  2. DOXEPIN HCL [Suspect]
     Indication: DEPRESSION
     Dosage: 100 MG Q DAY PO
     Route: 048
     Dates: start: 20000101, end: 20040206
  3. GLADEM [Suspect]
     Indication: DEPRESSION
     Dosage: 10 MG Q DAY PO
     Route: 048
     Dates: start: 20000101, end: 20040206
  4. BERLOSIN [Concomitant]

REACTIONS (12)
  - ABDOMINAL PAIN [None]
  - ALANINE AMINOTRANSFERASE INCREASED [None]
  - ASPARTATE AMINOTRANSFERASE INCREASED [None]
  - BLOOD BILIRUBIN INCREASED [None]
  - C-REACTIVE PROTEIN INCREASED [None]
  - CHOLELITHIASIS [None]
  - DRUG INTERACTION [None]
  - GALLBLADDER ENLARGEMENT [None]
  - GAMMA-GLUTAMYLTRANSFERASE INCREASED [None]
  - HEPATOCELLULAR DAMAGE [None]
  - JAUNDICE [None]
  - VOMITING [None]
